FAERS Safety Report 4573960-6 (Version None)
Quarter: 2005Q1

REPORT INFORMATION
  Report Type: 
  Country: None (occurrence: None)
  Receive Date: 20050204
  Receipt Date: 20050121
  Transmission Date: 20050727
  Serious: Yes (Hospitalization)
  Sender: FDA-Public Use
  Company Number: 8007065

PATIENT
  Age: 50 Year
  Sex: Female

DRUGS (3)
  1. KEPPRA [Suspect]
     Indication: GRAND MAL CONVULSION
     Dosage: 1000 MG/D PO
     Route: 048
     Dates: start: 20040201, end: 20040819
  2. KEPPRA [Suspect]
     Indication: GRAND MAL CONVULSION
     Dosage: 2000 MG /D PO
     Route: 048
     Dates: start: 20040820, end: 20040901
  3. DEPAKOTE [Concomitant]

REACTIONS (9)
  - GRAND MAL CONVULSION [None]
  - HEART RATE INCREASED [None]
  - IMPAIRED HEALING [None]
  - INFECTION [None]
  - MUSCLE SPASMS [None]
  - MUSCLE TWITCHING [None]
  - POSTOPERATIVE WOUND COMPLICATION [None]
  - TETANUS [None]
  - WHITE BLOOD CELL COUNT INCREASED [None]
